FAERS Safety Report 7427253-X (Version None)
Quarter: 2011Q2

REPORT INFORMATION
  Report Type: 
  Country: None (occurrence: None)
  Receive Date: 20110420
  Receipt Date: 20110413
  Transmission Date: 20111010
  Serious: Yes (Other)
  Sender: FDA-Public Use
  Company Number: US-PFIZER INC-2011081835

PATIENT

DRUGS (1)
  1. ZMAX [Suspect]
     Indication: SINUSITIS
     Dosage: UNK
     Route: 048

REACTIONS (1)
  - ATRIAL FIBRILLATION [None]
